FAERS Safety Report 7242859-9 (Version None)
Quarter: 2011Q1

REPORT INFORMATION
  Report Type: 
  Country: None (occurrence: None)
  Receive Date: 20110125
  Receipt Date: 20110113
  Transmission Date: 20110831
  Serious: Yes (Other)
  Sender: FDA-Public Use
  Company Number: US-AMGEN-USASP2011002245

PATIENT
  Age: 57 Year
  Sex: Female

DRUGS (4)
  1. CALCIUM [Concomitant]
  2. HORMONES AND RELATED AGENTS [Concomitant]
  3. PROLIA [Suspect]
     Indication: OSTEOPOROSIS POSTMENOPAUSAL
     Dates: start: 20101101
  4. VITAMIN A [Concomitant]

REACTIONS (1)
  - TIBIA FRACTURE [None]
